FAERS Safety Report 21189126 (Version 1)
Quarter: 2022Q3

REPORT INFORMATION
  Report Type: Spontaneous
  Country: US (occurrence: None)
  Receive Date: 20220809
  Receipt Date: 20220809
  Transmission Date: 20221027
  Serious: Yes (Death)
  Sender: FDA-Public Use
  Company Number: US-ROCHE-3156176

PATIENT
  Age: 91 Year
  Sex: Female
  Weight: 46.1 kg

DRUGS (2)
  1. ACTIVASE [Suspect]
     Active Substance: ALTEPLASE
     Indication: Cerebrovascular accident
     Dosage: GIVEN AS BOLUS AND THEN INTRAVENOUS DRIP, ONGOING: NO
     Route: 040
     Dates: start: 20220804, end: 20220804
  2. ACTIVASE [Suspect]
     Active Substance: ALTEPLASE

REACTIONS (4)
  - Death [Fatal]
  - Confusional state [Fatal]
  - Anxiety [Fatal]
  - Dyspnoea [Fatal]

NARRATIVE: CASE EVENT DATE: 20220804
